FAERS Safety Report 10994575 (Version 1)
Quarter: 2015Q2

REPORT INFORMATION
  Report Type: Spontaneous
  Country: US (occurrence: None)
  Receive Date: 20150406
  Receipt Date: 20150406
  Transmission Date: 20150821
  Serious: Yes (Hospitalization)
  Sender: FDA-Public Use
  Company Number: None

PATIENT
  Age: 56 Year
  Sex: Female
  Weight: 55.79 kg

DRUGS (23)
  1. PROLIA [Concomitant]
     Active Substance: DENOSUMAB
  2. METFORMIN [Concomitant]
     Active Substance: METFORMIN HYDROCHLORIDE
  3. ALPHA LIPOIC ACID [Concomitant]
     Active Substance: .ALPHA.-LIPOIC ACID
  4. DILTIAZEM [Concomitant]
     Active Substance: DILTIAZEM
  5. GABAPENTIN. [Concomitant]
     Active Substance: GABAPENTIN
  6. LIPITOR [Concomitant]
     Active Substance: ATORVASTATIN CALCIUM
  7. LOSARTAN POTASSIUM. [Concomitant]
     Active Substance: LOSARTAN POTASSIUM
  8. COQ10 [Concomitant]
     Active Substance: UBIDECARENONE
  9. PLAVIX [Concomitant]
     Active Substance: CLOPIDOGREL BISULFATE
  10. ZINC [Concomitant]
     Active Substance: ZINC\ZINC CHLORIDE
  11. ASPIRIN. [Concomitant]
     Active Substance: ASPIRIN
  12. HYDROXYCHLOROQUINE SULFATE. [Concomitant]
     Active Substance: HYDROXYCHLOROQUINE SULFATE
  13. SPIRONOLACTONE. [Concomitant]
     Active Substance: SPIRONOLACTONE
  14. RITUXAN [Concomitant]
     Active Substance: RITUXIMAB
  15. LEFLUNOMIDE. [Concomitant]
     Active Substance: LEFLUNOMIDE
  16. PREDNISONE. [Concomitant]
     Active Substance: PREDNISONE
  17. VITAMIN A [Concomitant]
     Active Substance: VITAMIN A
  18. VITAMIN D3 [Concomitant]
     Active Substance: CHOLECALCIFEROL
  19. FABB [Concomitant]
  20. CELCEPT [Concomitant]
  21. VITAMIN E [Concomitant]
     Active Substance: .ALPHA.-TOCOPHEROL
  22. CRESTOR [Suspect]
     Active Substance: ROSUVASTATIN CALCIUM
     Indication: BLOOD CHOLESTEROL INCREASED
     Dosage: 1 PILL
     Route: 048
     Dates: start: 20131201, end: 20140730
  23. SYMBICORT [Concomitant]
     Active Substance: BUDESONIDE\FORMOTEROL FUMARATE DIHYDRATE

REACTIONS (6)
  - Hepatic enzyme increased [None]
  - Walking aid user [None]
  - Muscular weakness [None]
  - Muscle atrophy [None]
  - Myocardial necrosis marker increased [None]
  - Vision blurred [None]

NARRATIVE: CASE EVENT DATE: 20140630
